FAERS Safety Report 9049926 (Version 3)
Quarter: 2013Q2

REPORT INFORMATION
  Report Type: Spontaneous
  Country: US (occurrence: US)
  Receive Date: 20130205
  Receipt Date: 20130401
  Transmission Date: 20140414
  Serious: Yes (Other)
  Sender: FDA-Public Use
  Company Number: US-ROCHE-736980

PATIENT
  Age: 38 Year
  Sex: Female
  Weight: 70.3 kg

DRUGS (2)
  1. ACCUTANE [Suspect]
     Indication: ACNE
     Route: 065
     Dates: start: 199511, end: 199606
  2. NORPLANT [Concomitant]
     Dosage: DRUG NAME:NORPLANT INSERT
     Route: 065

REACTIONS (3)
  - Colitis ulcerative [Recovering/Resolving]
  - Crohn^s disease [Unknown]
  - Large intestine polyp [Unknown]
